FAERS Safety Report 8104612 (Version 3)
Quarter: 2013Q1

REPORT INFORMATION
  Report Type: Report from Study
  Country: CA (occurrence: CA)
  Receive Date: 20110824
  Receipt Date: 20130304
  Transmission Date: 20140127
  Serious: Yes (Death, Other)
  Sender: FDA-Public Use
  Company Number: PHHY2011CA72716

PATIENT
  Sex: Female

DRUGS (2)
  1. CLOZARIL [Suspect]
     Indication: SCHIZOPHRENIA
     Dosage: UNK
     Dates: start: 20080715
  2. CLOZARIL [Suspect]
     Dosage: 100-100-300 MG
     Route: 048
     Dates: start: 201110

REACTIONS (4)
  - Breast cancer metastatic [Fatal]
  - Endometrial cancer [Fatal]
  - Pneumonia [Fatal]
  - Salmonella sepsis [Unknown]
